FAERS Safety Report 6702067-4 (Version None)
Quarter: 2010Q2

REPORT INFORMATION
  Report Type: 
  Country: None (occurrence: None)
  Receive Date: 20100429
  Receipt Date: 20100422
  Transmission Date: 20101027
  Serious: Yes (Other)
  Sender: FDA-Public Use
  Company Number: SE-BAXTER-2010BH009996

PATIENT
  Sex: Male

DRUGS (12)
  1. GAMMAGARD LIQUID [Suspect]
     Indication: POLYNEUROPATHY
     Route: 042
     Dates: start: 20100324, end: 20100324
  2. GAMMAGARD LIQUID [Suspect]
     Indication: OFF LABEL USE
     Route: 042
     Dates: start: 20100324, end: 20100324
  3. DETRUSITOL [Concomitant]
     Route: 048
  4. FELODIPINE [Concomitant]
     Route: 048
  5. SIMVASTATIN [Concomitant]
     Route: 048
  6. ENALAPRIL MALEATE [Concomitant]
     Route: 048
  7. ORALOVITE [Concomitant]
     Route: 048
  8. POTASSIUM CHLORIDE [Concomitant]
     Route: 048
  9. SELOKEN [Concomitant]
     Route: 048
  10. TROMBYL [Concomitant]
     Route: 048
  11. VIAGRA [Concomitant]
     Route: 048
  12. MAGNESIUM [Concomitant]
     Route: 048

REACTIONS (1)
  - HYPERSENSITIVITY [None]
